FAERS Safety Report 23063281 (Version 1)
Quarter: 2023Q4

REPORT INFORMATION
  Report Type: Spontaneous
  Country: BR (occurrence: BR)
  Receive Date: 20231013
  Receipt Date: 20231013
  Transmission Date: 20240109
  Serious: Yes (Other)
  Sender: FDA-Public Use
  Company Number: BR-BAYER-2023A139228

PATIENT
  Age: 33 Year
  Sex: Female

DRUGS (1)
  1. MIRENA [Suspect]
     Active Substance: LEVONORGESTREL
     Indication: Contraception
     Dosage: 20?G/DAY
     Route: 015
     Dates: start: 20191203

REACTIONS (8)
  - Abdominal distension [Recovered/Resolved with Sequelae]
  - Abdominal pain lower [None]
  - Breast pain [None]
  - Breast tenderness [None]
  - Fluid retention [None]
  - Contusion [None]
  - Night sweats [None]
  - Feeling hot [None]

NARRATIVE: CASE EVENT DATE: 20230101
